FAERS Safety Report 5121738-7 (Version None)
Quarter: 2006Q4

REPORT INFORMATION
  Report Type: 
  Country: None (occurrence: None)
  Receive Date: 20061006
  Receipt Date: 20060703
  Transmission Date: 20070319
  Serious: Yes (Hospitalization)
  Sender: FDA-Public Use
  Company Number: DE-ROCHE-453984

PATIENT
  Age: 41 Year
  Sex: Female

DRUGS (3)
  1. PEGASYS [Suspect]
     Route: 065
     Dates: start: 20050715, end: 20051015
  2. REBETOL [Suspect]
     Dosage: TAKEN THREE TABLETS, TWO TIMES DAILY.
     Route: 065
     Dates: start: 20050715, end: 20051015
  3. QUILONORM RETARD [Concomitant]
     Indication: DEPRESSION
     Dosage: 1.5 TABLETS IN THE MORNING AND 1.5 TABLETS IN THE EVENING.

REACTIONS (2)
  - DERMATITIS BULLOUS [None]
  - RASH [None]
